FAERS Safety Report 8180064-2 (Version None)
Quarter: 2012Q1

REPORT INFORMATION
  Report Type: 
  Country: None (occurrence: None)
  Receive Date: 20120302
  Receipt Date: 20120302
  Transmission Date: 20120608
  Serious: No
  Sender: FDA-Public Use
  Company Number: None

PATIENT
  Age: 69 Year
  Sex: Male
  Weight: 77.11 kg

DRUGS (2)
  1. FLOMAX [Suspect]
     Indication: URINARY RETENTION
     Dates: start: 20110811, end: 20120220
  2. TAMSULOSIN HCL [Concomitant]

REACTIONS (3)
  - URINARY TRACT PAIN [None]
  - PRODUCT SUBSTITUTION ISSUE [None]
  - INCONTINENCE [None]
